FAERS Safety Report 7988349-7 (Version None)
Quarter: 2011Q4

REPORT INFORMATION
  Report Type: 
  Country: None (occurrence: None)
  Receive Date: 20111216
  Receipt Date: 20111121
  Transmission Date: 20120403
  Serious: Yes (Hospitalization, Other)
  Sender: FDA-Public Use
  Company Number: JP-ABBOTT-11P-087-0876781-00

PATIENT
  Age: 50 Year
  Sex: Male

DRUGS (7)
  1. SELEGILINE [Suspect]
     Indication: DEPRESSION
     Dates: start: 20050501
  2. VALPROATE SODIUM [Suspect]
     Indication: PRODUCT USED FOR UNKNOWN INDICATION
  3. HYPNOTICS [Concomitant]
     Indication: DEPRESSION
  4. MOOD STABLIZERS [Concomitant]
     Indication: DEPRESSION
  5. CARBAMAZEPINE [Suspect]
     Indication: PRODUCT USED FOR UNKNOWN INDICATION
  6. TRAZODONE HCL [Suspect]
     Indication: PRODUCT USED FOR UNKNOWN INDICATION
  7. NITRAZEPAM [Suspect]
     Indication: PRODUCT USED FOR UNKNOWN INDICATION

REACTIONS (2)
  - CONVULSION [None]
  - OVERDOSE [None]
